FAERS Safety Report 5461777-X (Version None)
Quarter: 2007Q3

REPORT INFORMATION
  Report Type: 
  Country: None (occurrence: None)
  Receive Date: 20070920
  Receipt Date: 20061215
  Transmission Date: 20080115
  Serious: No
  Sender: FDA-Public Use
  Company Number: A0631577A

PATIENT
  Age: 59 Year
  Sex: Female

DRUGS (1)
  1. ABREVA [Suspect]
     Dates: start: 20061208, end: 20061209

REACTIONS (6)
  - ANXIETY [None]
  - DEPRESSION [None]
  - DYSGEUSIA [None]
  - DYSPHONIA [None]
  - INITIAL INSOMNIA [None]
  - PARAESTHESIA ORAL [None]
